FAERS Safety Report 5960019-6 (Version None)
Quarter: 2008Q4

REPORT INFORMATION
  Report Type: 
  Country: None (occurrence: None)
  Receive Date: 20081120
  Receipt Date: 20081117
  Transmission Date: 20090506
  Serious: Yes (Other)
  Sender: FDA-Public Use
  Company Number: DE-MERCK-0811DEU00063

PATIENT
  Age: 48 Year
  Sex: Female
  Weight: 80 kg

DRUGS (13)
  1. SINGULAIR [Suspect]
     Route: 048
     Dates: start: 20081116, end: 20081116
  2. ACETYLCYSTEINE [Suspect]
     Route: 048
     Dates: start: 20081116, end: 20081116
  3. ASPIRIN [Suspect]
     Route: 048
     Dates: start: 20081116, end: 20081116
  4. PROPICILLIN POTASSIUM [Suspect]
     Route: 048
     Dates: start: 20081116, end: 20081116
  5. CLARITHROMYCIN [Suspect]
     Route: 048
     Dates: start: 20081116, end: 20081116
  6. DICLOFENAC SODIUM [Suspect]
     Route: 048
     Dates: start: 20081116, end: 20081116
  7. DOXYLAMINE SUCCINATE [Suspect]
     Route: 048
     Dates: start: 20081116, end: 20081116
  8. DIPYRONE [Suspect]
     Route: 048
     Dates: start: 20081116, end: 20081116
  9. ACETYLDIGOXIN [Suspect]
     Route: 048
     Dates: start: 20081116, end: 20081116
  10. OMEPRAZOLE [Suspect]
     Route: 048
     Dates: start: 20081116, end: 20081116
  11. ACETAMINOPHEN [Suspect]
     Route: 048
     Dates: start: 20081116, end: 20081116
  12. HYDROCHLOROTHIAZIDE AND RAMIPRIL [Suspect]
     Route: 048
     Dates: start: 20081116, end: 20081116
  13. ACEMETACIN [Suspect]
     Route: 048
     Dates: start: 20081116, end: 20081116

REACTIONS (2)
  - HYPERTENSION [None]
  - SUICIDE ATTEMPT [None]
